FAERS Safety Report 9974065 (Version 1)
Quarter: 2014Q1

REPORT INFORMATION
  Report Type: Spontaneous
  Country: US (occurrence: US)
  Receive Date: 20140306
  Receipt Date: 20140306
  Transmission Date: 20141002
  Serious: Yes (Death)
  Sender: FDA-Public Use
  Company Number: US-GLAXOSMITHKLINE-A1062542A

PATIENT
  Age: 90 Year
  Sex: Female

DRUGS (16)
  1. PROMACTA [Suspect]
     Indication: PRODUCT USED FOR UNKNOWN INDICATION
     Dosage: 50MG PER DAY
     Route: 048
     Dates: start: 20140113
  2. CEFTIN [Concomitant]
  3. MACROBID [Concomitant]
  4. CIPRO [Concomitant]
  5. LANTUS [Concomitant]
  6. LEXAPRO [Concomitant]
  7. SEROQUEL [Concomitant]
  8. TYLENOL [Concomitant]
  9. ZOCOR [Concomitant]
  10. MEGESTROL [Concomitant]
  11. SYNTHROID [Concomitant]
  12. AMIODARONE [Concomitant]
  13. LISINOPRIL [Concomitant]
  14. HUMALOG [Concomitant]
  15. POTASSIUM [Concomitant]
  16. PREDNISONE [Concomitant]

REACTIONS (1)
  - Death [Fatal]
